FAERS Safety Report 4287280-0 (Version None)
Quarter: 2004Q1

REPORT INFORMATION
  Report Type: 
  Country: None (occurrence: None)
  Receive Date: 20040126
  Receipt Date: 20030917
  Transmission Date: 20041129
  Serious: No
  Sender: FDA-Public Use
  Company Number: USA030741204

PATIENT
  Age: 82 Year
  Sex: Female
  Weight: 51 kg

DRUGS (3)
  1. FORTEO [Suspect]
     Indication: OSTEOPOROSIS
     Dosage: 20 UG/DAY
     Dates: start: 20030612
  2. FOSAMAX [Concomitant]
  3. PRILOSEC [Concomitant]

REACTIONS (6)
  - ACCIDENTAL NEEDLE STICK [None]
  - CONSTIPATION [None]
  - GASTRIC HAEMORRHAGE [None]
  - HAEMORRHOIDS [None]
  - INJECTION SITE HAEMORRHAGE [None]
  - SKIN INJURY [None]
